FAERS Safety Report 17943264 (Version 14)
Quarter: 2024Q3

REPORT INFORMATION
  Report Type: Report from Study
  Country: IL (occurrence: IL)
  Receive Date: 20200625
  Receipt Date: 20240928
  Transmission Date: 20241016
  Serious: Yes (Hospitalization, Other)
  Sender: ABBVIE
  Company Number: IL-ABBVIE-20K-082-3284515-00

PATIENT
  Age: 80 Year
  Sex: Male
  Weight: 65 kg

DRUGS (32)
  1. VENCLEXTA [Suspect]
     Active Substance: VENETOCLAX
     Indication: Chronic lymphocytic leukaemia
     Dosage: RAMP UP DOSE INCREASE ACCORDING TO VENETOCLAX DOSE TITRATION SCHEME
     Route: 048
     Dates: start: 20191222, end: 20191228
  2. VENCLEXTA [Suspect]
     Active Substance: VENETOCLAX
     Indication: Chronic lymphocytic leukaemia
     Dosage: RAMP UP DOSE INCREASE ACCORDING TO VENETOCLAX DOSE TITRATION SCHEME
     Route: 048
     Dates: start: 20191229, end: 20200101
  3. VENCLEXTA [Suspect]
     Active Substance: VENETOCLAX
     Indication: Chronic lymphocytic leukaemia
     Dosage: RAMP UP DOSE INCREASE ACCORDING TO VENETOCLAX DOSE TITRATION SCHEME
     Route: 048
     Dates: start: 20200102, end: 20200108
  4. VENCLEXTA [Suspect]
     Active Substance: VENETOCLAX
     Indication: Chronic lymphocytic leukaemia
     Dosage: INCREASE ACCORDING TO TITRATION SCHEME MODIFICATION TO DAILY DOSE DUE TO ADVERSE EVENT
     Route: 048
     Dates: start: 20200109, end: 20200116
  5. VENCLEXTA [Suspect]
     Active Substance: VENETOCLAX
     Indication: Chronic lymphocytic leukaemia
     Dosage: DISCONTINUATION - PROGRESSION OF DISEASE
     Route: 048
     Dates: start: 20200117, end: 202006
  6. VENCLEXTA [Suspect]
     Active Substance: VENETOCLAX
     Indication: Chronic lymphocytic leukaemia
     Dosage: PHYSICIAN DECISION TO INCREASE DOSE
     Route: 048
     Dates: start: 202007, end: 20200819
  7. VENCLEXTA [Suspect]
     Active Substance: VENETOCLAX
     Indication: Chronic lymphocytic leukaemia
     Dosage: 200 MILLIGRAM
     Route: 048
     Dates: start: 20200820, end: 20210417
  8. VENCLEXTA [Suspect]
     Active Substance: VENETOCLAX
     Indication: Chronic lymphocytic leukaemia
     Dosage: DISCONTINUATION - PROGRESSION OF DISEASE
     Route: 048
     Dates: start: 20210418, end: 20210419
  9. RITUXIMAB [Suspect]
     Active Substance: RITUXIMAB
     Indication: Chronic lymphocytic leukaemia
     Dosage: CYCLE 1?FORM STRENGTH: 650 MILLIGRAM
     Route: 065
     Dates: start: 20200521, end: 20200521
  10. RITUXIMAB [Suspect]
     Active Substance: RITUXIMAB
     Indication: Chronic lymphocytic leukaemia
     Dosage: CYCLE 2?FORM STRENGTH: 650 MG
     Route: 065
     Dates: start: 20200123, end: 20200123
  11. RITUXIMAB [Suspect]
     Active Substance: RITUXIMAB
     Indication: Chronic lymphocytic leukaemia
     Dosage: CYCLE 3?FORM STRENGTH: 650 MG
     Route: 065
     Dates: start: 20200227, end: 20200227
  12. RITUXIMAB [Suspect]
     Active Substance: RITUXIMAB
     Indication: Chronic lymphocytic leukaemia
     Dosage: CYCLE 4?FORM STRENGTH: 650 MG
     Route: 065
     Dates: start: 20200326, end: 20200326
  13. RITUXIMAB [Suspect]
     Active Substance: RITUXIMAB
     Indication: Chronic lymphocytic leukaemia
     Dosage: CYCLE 5?FORM STRENGTH: 650 MILLIGRAM
     Route: 065
     Dates: start: 20200423, end: 20200423
  14. Fusid [Concomitant]
     Indication: Chronic obstructive pulmonary disease
     Dates: start: 2010
  15. ATENOLOL [Concomitant]
     Active Substance: ATENOLOL
     Indication: Myocardial ischaemia
     Dates: start: 1987
  16. OMEPRAZOLE [Concomitant]
     Active Substance: OMEPRAZOLE
     Indication: Peptic ulcer
     Dates: start: 2009
  17. ACYCLOVIR [Concomitant]
     Active Substance: ACYCLOVIR
     Indication: Antiviral prophylaxis
     Dates: start: 201808
  18. SIMVASTATIN [Concomitant]
     Active Substance: SIMVASTATIN
     Indication: Hyperlipidaemia
     Dates: start: 2015
  19. ITRANOL [Concomitant]
     Indication: Aspergillus infection
     Dates: start: 201909
  20. TAMSULOSIN HYDROCHLORIDE [Concomitant]
     Active Substance: TAMSULOSIN HYDROCHLORIDE
     Indication: Urine output decreased
     Dates: start: 201907
  21. ALLOPURINOL [Concomitant]
     Active Substance: ALLOPURINOL
     Indication: Prophylaxis
     Dates: start: 201907, end: 202001
  22. IVIGLOB EX [Concomitant]
     Active Substance: HUMAN IMMUNOGLOBULIN G
     Indication: Infection prophylaxis
  23. ACETAMINOPHEN [Concomitant]
     Active Substance: ACETAMINOPHEN
     Indication: Premedication
     Dates: start: 20191208
  24. HYDROCORTISONE [Concomitant]
     Active Substance: HYDROCORTISONE\HYDROCORTISONE ACETATE
     Indication: Premedication
     Dates: start: 20191208
  25. LORATADINE [Concomitant]
     Active Substance: LORATADINE
     Indication: Premedication
     Dates: start: 20191208
  26. PREDNISONE [Concomitant]
     Active Substance: PREDNISONE
     Indication: Back pain
     Dates: start: 20191230
  27. DEPO-MEDROL [Concomitant]
     Active Substance: METHYLPREDNISOLONE ACETATE
     Indication: Back pain
     Dates: start: 20200115, end: 20200115
  28. DEPO-MEDROL [Concomitant]
     Active Substance: METHYLPREDNISOLONE ACETATE
     Indication: Back pain
     Dates: start: 20200210, end: 20200210
  29. MARCAINE [Concomitant]
     Active Substance: BUPIVACAINE HYDROCHLORIDE
     Indication: Back pain
     Dates: start: 20200115, end: 20200115
  30. MARCAINE [Concomitant]
     Active Substance: BUPIVACAINE HYDROCHLORIDE
     Indication: Back pain
     Dates: start: 20200210, end: 20200210
  31. PFIZER-BIONTECH COVID-19 VACCINE [Concomitant]
     Active Substance: TOZINAMERAN
     Indication: COVID-19 immunisation
     Dosage: TIME INTERVAL: 1 TOTAL: PFIZER, FIRST DOSE
     Route: 030
     Dates: start: 20201228, end: 20201228
  32. PFIZER-BIONTECH COVID-19 VACCINE [Concomitant]
     Active Substance: TOZINAMERAN
     Indication: COVID-19 immunisation
     Dosage: TIME INTERVAL: 1 TOTAL: PFIZER, SECOND DOSE
     Route: 030
     Dates: start: 20210118, end: 20210118

REACTIONS (24)
  - Spinal compression fracture [Recovered/Resolved]
  - COVID-19 [Recovered/Resolved]
  - Anal abscess [Recovered/Resolved]
  - Disease progression [Unknown]
  - Spinal compression fracture [Recovered/Resolved]
  - Thoracic vertebral fracture [Recovered/Resolved]
  - Chronic lymphocytic leukaemia [Unknown]
  - Furuncle [Recovered/Resolved]
  - Vertebroplasty [Recovered/Resolved]
  - Angiokeratoma [Recovered/Resolved]
  - Eczema nummular [Not Recovered/Not Resolved]
  - Unevaluable event [Not Recovered/Not Resolved]
  - Vertebroplasty [Recovered/Resolved]
  - Dysphagia [Not Recovered/Not Resolved]
  - Seborrhoeic keratosis [Recovered/Resolved]
  - Weight decreased [Recovered/Resolved]
  - Osteopenia [Recovered/Resolved]
  - Anaemia [Recovered/Resolved]
  - Neutropenia [Recovered/Resolved]
  - Neutropenia [Recovered/Resolved]
  - Neutropenia [Recovered/Resolved]
  - Pyrexia [Recovered/Resolved]
  - Laryngeal disorder [Not Recovered/Not Resolved]
  - Richter^s syndrome [Unknown]

NARRATIVE: CASE EVENT DATE: 20200115
